FAERS Safety Report 8572419-9 (Version None)
Quarter: 2012Q3

REPORT INFORMATION
  Report Type: 
  Country: None (occurrence: None)
  Receive Date: 20120806
  Receipt Date: 20120723
  Transmission Date: 20120928
  Serious: No
  Sender: FDA-Public Use
  Company Number: US-ASTRAZENECA-2012SE52275

PATIENT
  Age: 73 Year
  Sex: Female

DRUGS (3)
  1. NEXIUM [Suspect]
     Route: 048
  2. PRILOSEC OTC [Suspect]
     Route: 048
  3. OMEPRAZOLE [Suspect]
     Route: 065

REACTIONS (3)
  - DRUG INTOLERANCE [None]
  - DYSPEPSIA [None]
  - DRUG INEFFECTIVE [None]
